FAERS Safety Report 7988834 (Version 2)
Quarter: 2012Q4

REPORT INFORMATION
  Report Type: 
  Country: CA (occurrence: CA)
  Receive Date: 20110613
  Receipt Date: 20121111
  Transmission Date: 20130627
  Serious: Yes (Death, Hospitalization, Other)
  Sender: FDA-Public Use
  Company Number: PHMT2007CA02002

PATIENT
  Age: 77 Year
  Sex: Male

DRUGS (1)
  1. SANDOSTATIN LAR [Suspect]
     Indication: PANCREATIC CARCINOMA
     Dosage: 20 mg, UNK
     Route: 030
     Dates: start: 20070723, end: 20071015

REACTIONS (10)
  - Death [Fatal]
  - Tremor [Unknown]
  - Fall [Unknown]
  - Appetite disorder [Unknown]
  - Asthenia [Unknown]
  - Pallor [Unknown]
  - Balance disorder [Unknown]
  - Abdominal discomfort [Unknown]
  - Diarrhoea [Unknown]
  - Fatigue [Unknown]
